FAERS Safety Report 9258054 (Version 1)
Quarter: 2013Q2

REPORT INFORMATION
  Report Type: Report from Study
  Country: US (occurrence: US)
  Receive Date: 20130426
  Receipt Date: 20130426
  Transmission Date: 20140414
  Serious: Yes (Hospitalization)
  Sender: FDA-Public Use
  Company Number: US-ACTELION-A-NJ2013-82224

PATIENT
  Age: 46 Year
  Sex: Female
  Weight: 76.9 kg

DRUGS (12)
  1. VELETRI [Suspect]
     Indication: PULMONARY ARTERIAL HYPERTENSION
     Dosage: 11 NG/KG, PER MIN
     Route: 041
     Dates: start: 20111117, end: 201205
  2. VELETRI [Suspect]
     Dosage: 10 NG/KG, PER MIN
     Route: 041
     Dates: start: 201205
  3. PRAVASTATIN [Concomitant]
     Dosage: 20 MG, UNK
     Route: 048
  4. SPIRONOLACTONE [Concomitant]
     Dosage: 25 MG, UNK
     Dates: start: 20110425
  5. FUROSEMIDE [Concomitant]
     Dosage: 40 MG, UNK
  6. PREDNISONE [Concomitant]
     Dosage: 40 MG, UNK
  7. ALBUTEROL [Concomitant]
  8. FOLIC ACID [Concomitant]
  9. TRAMADOL [Concomitant]
     Dosage: 50 MG, UNK
  10. METFORMIN [Concomitant]
     Dosage: 500 MG, UNK
  11. RANITIDINE [Concomitant]
     Dosage: 15 MG, BID
  12. OXYGEN [Concomitant]

REACTIONS (20)
  - Cerebral hypoperfusion [Recovered/Resolved]
  - Hypovolaemia [Recovered/Resolved]
  - Hypophagia [Recovered/Resolved]
  - Cough [Recovered/Resolved]
  - Hyperkalaemia [Unknown]
  - Renal failure acute [Unknown]
  - Sinus tachycardia [Unknown]
  - Hepatic congestion [Unknown]
  - Hepatic enzyme increased [Not Recovered/Not Resolved]
  - Aspartate aminotransferase increased [Not Recovered/Not Resolved]
  - Alanine aminotransferase increased [Not Recovered/Not Resolved]
  - Syncope [Recovered/Resolved]
  - Loss of consciousness [Recovered/Resolved]
  - Nausea [Recovered/Resolved]
  - Decreased appetite [Recovered/Resolved]
  - Diarrhoea [Recovered/Resolved]
  - Vomiting [Recovered/Resolved]
  - Functional residual capacity decreased [Unknown]
  - Dizziness [Unknown]
  - Dyspnoea [Unknown]
